FAERS Safety Report 7113843-0 (Version None)
Quarter: 2010Q4

REPORT INFORMATION
  Report Type: 
  Country: None (occurrence: None)
  Receive Date: 20101119
  Receipt Date: 20101109
  Transmission Date: 20110411
  Serious: Yes (Other)
  Sender: FDA-Public Use
  Company Number: US-CELGENEUS-163-21880-10070947

PATIENT
  Sex: Female

DRUGS (15)
  1. REVLIMID [Suspect]
     Indication: MULTIPLE MYELOMA
     Route: 048
     Dates: start: 20100624
  2. REVLIMID [Suspect]
     Route: 048
     Dates: start: 20100701
  3. ACYCLOVIR [Concomitant]
     Indication: ANTIVIRAL PROPHYLAXIS
     Route: 048
     Dates: start: 20100610
  4. BECLOMETHASONE DIPROPIONATE [Concomitant]
     Indication: ASTHMA
     Dosage: 2 PUFFS
     Route: 055
     Dates: start: 20100927
  5. BUDESONIDE/FORMOTEROL [Concomitant]
     Dosage: 160/4.5MCG/2 SPRAYS
     Route: 055
     Dates: start: 20100927
  6. CARBAMAZEPINE [Concomitant]
     Route: 048
     Dates: start: 20100809
  7. CHOLECALCIFEROL [Concomitant]
     Route: 048
     Dates: start: 20100608
  8. DEXAMETHASONE [Concomitant]
     Route: 048
     Dates: start: 20100610
  9. ERGOCALCIFEROL [Concomitant]
     Route: 048
     Dates: start: 20100614
  10. FLUTICASONE PROPIONATE [Concomitant]
     Dosage: 2 SPRAYS
     Route: 045
     Dates: start: 20100927
  11. OMEPRAZOLE [Concomitant]
     Route: 048
     Dates: start: 20100726
  12. ALBUTEROL [Concomitant]
     Indication: ASTHMA
     Dosage: 1-2 PUFFS
     Route: 055
     Dates: start: 20100927
  13. HYDROMORPHONE HYDROCHLORIDE [Concomitant]
     Dosage: 0.5-1 TABLET
     Route: 048
     Dates: start: 20101011
  14. IPRATROPIUM BROMIDE [Concomitant]
     Dosage: 2 SPRAYS
     Route: 045
     Dates: start: 20100927
  15. LIDOCAINE [Concomitant]
     Indication: PAIN
     Dosage: 1 PATCH
     Route: 061
     Dates: start: 20100927

REACTIONS (1)
  - BLOOD HUMAN CHORIONIC GONADOTROPIN INCREASED [None]
